FAERS Safety Report 7557372-9 (Version None)
Quarter: 2011Q2

REPORT INFORMATION
  Report Type: 
  Country: None (occurrence: None)
  Receive Date: 20110620
  Receipt Date: 20110613
  Transmission Date: 20111010
  Serious: Yes (Hospitalization)
  Sender: FDA-Public Use
  Company Number: PHHO2011DE10174

PATIENT
  Age: 68 Year
  Sex: Male
  Weight: 76 kg

DRUGS (8)
  1. SUNITINIB MALATE [Concomitant]
     Dosage: 25 MG, QD
     Route: 048
     Dates: start: 20100817
  2. PREDNISONE [Concomitant]
     Indication: PROSTATE CANCER
     Dosage: 5 MG, BID
     Route: 048
     Dates: start: 20100415, end: 20100809
  3. LEUPROLIDE ACETATE [Concomitant]
  4. SUNITINIB MALATE [Concomitant]
     Indication: PROSTATE CANCER
     Dosage: 25 MG, QD
     Route: 048
     Dates: start: 20100415, end: 20100809
  5. CYMBALTA [Concomitant]
  6. PREDNISONE [Concomitant]
     Dosage: 5 MG, BID
     Route: 048
     Dates: start: 20100817
  7. CALCIUM CARBONATE [Concomitant]
  8. ZOLEDRONIC ACID [Suspect]
     Indication: METASTASES TO BONE
     Dosage: 4 MG, EVERY 4 WEEKS
     Route: 042
     Dates: start: 20080401

REACTIONS (1)
  - OSTEONECROSIS OF JAW [None]
